FAERS Safety Report 16479124 (Version 1)
Quarter: 2019Q2

REPORT INFORMATION
  Report Type: Spontaneous
  Country: US (occurrence: US)
  Receive Date: 20190626
  Receipt Date: 20190626
  Transmission Date: 20190711
  Serious: Yes (Other)
  Sender: FDA-Public Use
  Company Number: US-SAOL THERAPEUTICS-2018SAO01105

PATIENT
  Age: 50 Year
  Sex: Female

DRUGS (2)
  1. LIORESAL [Suspect]
     Active Substance: BACLOFEN
     Dosage: 407.4 ?G, \DAY
     Route: 037
     Dates: end: 20181129
  2. LIORESAL [Suspect]
     Active Substance: BACLOFEN
     Dosage: UNK; REDUCTION OF DAILY DOSE BY 20%
     Dates: start: 20181129

REACTIONS (1)
  - Implant site infection [Not Recovered/Not Resolved]

NARRATIVE: CASE EVENT DATE: 20181129
